FAERS Safety Report 24938175 (Version 2)
Quarter: 2025Q1

REPORT INFORMATION
  Report Type: Report from Study
  Country: KR (occurrence: KR)
  Receive Date: 20250206
  Receipt Date: 20250208
  Transmission Date: 20250408
  Serious: Yes (Death)
  Sender: AMGEN
  Company Number: KR-AMGEN-KORNI2025023777

PATIENT
  Age: 75 Year
  Sex: Male

DRUGS (1)
  1. TARLATAMAB [Suspect]
     Active Substance: TARLATAMAB
     Indication: Small cell lung cancer
     Route: 065

REACTIONS (1)
  - Disease progression [Fatal]
